FAERS Safety Report 9069654 (Version 2)
Quarter: 2013Q1

REPORT INFORMATION
  Report Type: Spontaneous
  Country: IE (occurrence: IE)
  Receive Date: 20130215
  Receipt Date: 20130315
  Transmission Date: 20140127
  Serious: Yes (Death, Hospitalization, Other)
  Sender: FDA-Public Use
  Company Number: IE-BAXTER-2013BAX005236

PATIENT
  Sex: Male

DRUGS (5)
  1. GLUCOSE 5% W/V INTRAVENOUS INFUSION BP, POLYOLEFIN/POLYAMIDE BAG [Suspect]
     Indication: PRODUCT USED FOR UNKNOWN INDICATION
     Route: 065
     Dates: start: 20111212, end: 20111212
  2. OXALIPLATIN [Suspect]
     Indication: PRODUCT USED FOR UNKNOWN INDICATION
     Route: 065
     Dates: start: 20111212, end: 20111212
  3. FOLINIC ACID [Suspect]
     Indication: PRODUCT USED FOR UNKNOWN INDICATION
     Route: 042
     Dates: start: 20111212
  4. FLUOROURACIL [Suspect]
     Indication: PRODUCT USED FOR UNKNOWN INDICATION
     Route: 065
     Dates: start: 20111212, end: 20111212
  5. IRINOTECAN [Suspect]
     Indication: PRODUCT USED FOR UNKNOWN INDICATION
     Route: 042

REACTIONS (4)
  - Disease progression [Fatal]
  - Drug hypersensitivity [Unknown]
  - Pyrexia [Unknown]
  - Neutropenic sepsis [Unknown]
